FAERS Safety Report 16087369 (Version 2)
Quarter: 2019Q2

REPORT INFORMATION
  Report Type: Other
  Country: US (occurrence: FR)
  Receive Date: 20190319
  Receipt Date: 20190508
  Transmission Date: 20190711
  Serious: Yes (Congenital Anomaly, Other)
  Sender: FDA-Public Use
  Company Number: US-MACLEODS PHARMACEUTICALS US LTD-MAC2019020502

PATIENT

DRUGS (5)
  1. ABACAVIR/LAMIVUDINE [Suspect]
     Active Substance: ABACAVIR\LAMIVUDINE
     Indication: HIV INFECTION
     Dosage: UNK, 1 COURCE, EPZICOM, KIVEXA, EPZ, DURING 1 TRIMESTER
     Route: 064
     Dates: start: 20160501, end: 20170129
  2. DARUNAVIR [Suspect]
     Active Substance: DARUNAVIR
     Indication: HIV INFECTION
     Dosage: UNK, 1 COURCE, PREZISTA DRV, DURING 1 TRIMESTER
     Route: 064
     Dates: start: 20160501, end: 20170129
  3. RITONAVIR. [Suspect]
     Active Substance: RITONAVIR
     Indication: HIV INFECTION
     Dosage: UNK, 1 COURCE, NORVIR, RTV, DURING 1 TRIMESTER
     Route: 064
     Dates: start: 20160501, end: 20170129
  4. ATAZANAVIR SULFATE. [Suspect]
     Active Substance: ATAZANAVIR SULFATE
     Indication: HIV INFECTION
     Dosage: UNK, 1 COURCE, REYATAZ, ATV, DURING 1 TRIMESTER
     Route: 064
     Dates: start: 20160501, end: 20170129
  5. NEVIRAPINE. [Suspect]
     Active Substance: NEVIRAPINE
     Indication: HIV INFECTION
     Dosage: UNK, 1 COURCE
     Route: 048

REACTIONS (9)
  - Ichthyosis [Unknown]
  - Acoustic stimulation tests abnormal [Unknown]
  - Congenital naevus [Unknown]
  - Low set ears [Unknown]
  - Left ventricular dilatation [Unknown]
  - Breast disorder [Unknown]
  - Foetal exposure during pregnancy [Unknown]
  - Eosinophilia [Unknown]
  - Foetal growth restriction [Unknown]
